FAERS Safety Report 8940488 (Version 2)
Quarter: 2014Q1

REPORT INFORMATION
  Report Type: Report from Study
  Country: FR (occurrence: FR)
  Receive Date: 20121203
  Receipt Date: 20140128
  Transmission Date: 20141002
  Serious: Yes (Other)
  Sender: FDA-Public Use
  Company Number: FR-ROCHE-1162665

PATIENT
  Age: 74 Year
  Sex: Female

DRUGS (7)
  1. RITUXIMAB [Suspect]
     Indication: RHEUMATOID ARTHRITIS
     Route: 042
     Dates: start: 20061208
  2. RITUXIMAB [Suspect]
     Route: 042
     Dates: start: 20061222, end: 20070828
  3. HUMIRA [Suspect]
     Indication: RHEUMATOID ARTHRITIS
     Route: 065
     Dates: start: 2009, end: 20120511
  4. METOJECT [Concomitant]
     Route: 065
  5. CORTANCYL [Concomitant]
     Route: 065
  6. ENBREL [Concomitant]
  7. CERTOLIZUMAB [Concomitant]

REACTIONS (6)
  - Basal cell carcinoma [Unknown]
  - Adrenal insufficiency [Not Recovered/Not Resolved]
  - Skin reaction [Not Recovered/Not Resolved]
  - Injection site reaction [Not Recovered/Not Resolved]
  - Abdominal pain upper [Unknown]
  - Tooth infection [Unknown]
